FAERS Safety Report 23153474 (Version 2)
Quarter: 2023Q4

REPORT INFORMATION
  Report Type: Report from Study
  Country: AR (occurrence: AR)
  Receive Date: 20231107
  Receipt Date: 20231215
  Transmission Date: 20240109
  Serious: Yes (Hospitalization, Other)
  Sender: FDA-Public Use
  Company Number: AR-002147023-NVSC2023AR066166

PATIENT
  Sex: Female

DRUGS (2)
  1. KISQALI [Suspect]
     Active Substance: RIBOCICLIB
     Indication: Breast cancer metastatic
     Dosage: 600 MG, QD, 3 OF 200  MG (600  MG)()
     Route: 048
     Dates: start: 20220201
  2. LETROZOLE [Suspect]
     Active Substance: LETROZOLE
     Indication: Breast cancer metastatic
     Dosage: 2.5 MG, (1 OF 2.5  MG)
     Route: 065
     Dates: start: 20220201

REACTIONS (17)
  - Joint instability [Unknown]
  - Memory impairment [Not Recovered/Not Resolved]
  - Dementia [Unknown]
  - Fall [Unknown]
  - Pain [Unknown]
  - Malaise [Unknown]
  - Haemorrhage [Unknown]
  - Delirium [Unknown]
  - Pyrexia [Unknown]
  - Abdominal pain upper [Unknown]
  - Feeding disorder [Unknown]
  - Infected naevus [Unknown]
  - Melanocytic naevus [Unknown]
  - Headache [Unknown]
  - Amnesia [Unknown]
  - Urinary incontinence [Unknown]
  - Nasopharyngitis [Unknown]

NARRATIVE: CASE EVENT DATE: 20220101
